FAERS Safety Report 26211691 (Version 1)
Quarter: 2025Q4

REPORT INFORMATION
  Report Type: Spontaneous
  Country: US (occurrence: US)
  Receive Date: 20251230
  Receipt Date: 20251230
  Transmission Date: 20260118
  Serious: Yes (Other)
  Sender: PACIRA
  Company Number: US-ORG100016242-2025000510

PATIENT
  Age: 88 Year
  Sex: Female

DRUGS (1)
  1. ZILRETTA [Suspect]
     Active Substance: TRIAMCINOLONE ACETONIDE
     Indication: Product used for unknown indication
     Dosage: BILATERAL KNEE INJECTIONS (ONCE TO EACH KNEE)
     Route: 050
     Dates: start: 20250722, end: 20250722

REACTIONS (7)
  - Brain fog [Not Recovered/Not Resolved]
  - Abnormal behaviour [Not Recovered/Not Resolved]
  - Peripheral swelling [Not Recovered/Not Resolved]
  - Sleep disorder [Unknown]
  - Mood altered [Not Recovered/Not Resolved]
  - Muscular weakness [Not Recovered/Not Resolved]
  - Erythema [Not Recovered/Not Resolved]

NARRATIVE: CASE EVENT DATE: 20250801
